FAERS Safety Report 19841676 (Version 1)
Quarter: 2021Q3

REPORT INFORMATION
  Report Type: Spontaneous
  Country: US (occurrence: US)
  Receive Date: 20210916
  Receipt Date: 20210916
  Transmission Date: 20211014
  Serious: No
  Sender: FDA-Public Use
  Company Number: US-GW PHARMA-202109USGW04444

PATIENT

DRUGS (1)
  1. EPIDIOLEX [Suspect]
     Active Substance: CANNABIDIOL
     Indication: IDIOPATHIC GENERALISED EPILEPSY
     Dosage: 400 MILLIGRAM, BID (DOSE HAS ALSO BEEN INCREASED TO 5.5 ML TWICE DAILY SCHEDULED TO BE DELIVERED ON
     Route: 048
     Dates: start: 202105

REACTIONS (2)
  - Product use in unapproved indication [Unknown]
  - Weight abnormal [Unknown]

NARRATIVE: CASE EVENT DATE: 2021
